FAERS Safety Report 9263702 (Version 3)
Quarter: 2014Q1

REPORT INFORMATION
  Report Type: Spontaneous
  Country: FR (occurrence: FR)
  Receive Date: 20130430
  Receipt Date: 20140123
  Transmission Date: 20141002
  Serious: Yes (Other)
  Sender: FDA-Public Use
  Company Number: PHHY2013FR042479

PATIENT
  Age: 41 Year
  Sex: Male

DRUGS (1)
  1. GILENYA [Suspect]
     Indication: MULTIPLE SCLEROSIS
     Dosage: 0.5 MG, QD
     Route: 048
     Dates: start: 2011

REACTIONS (2)
  - Granulomatous liver disease [Not Recovered/Not Resolved]
  - Hepatic enzyme increased [Recovered/Resolved]
